FAERS Safety Report 24161149 (Version 2)
Quarter: 2024Q3

REPORT INFORMATION
  Report Type: Spontaneous
  Country: TW (occurrence: TW)
  Receive Date: 20240801
  Receipt Date: 20240904
  Transmission Date: 20241017
  Serious: Yes (Other)
  Sender: MERCK
  Company Number: TW-009507513-2407TWN015195

PATIENT
  Age: 52 Year
  Sex: Female

DRUGS (5)
  1. PEMBROLIZUMAB [Suspect]
     Active Substance: PEMBROLIZUMAB
     Indication: Lung squamous cell carcinoma stage III
     Dosage: DOUBLET X 1
  2. PEMBROLIZUMAB [Suspect]
     Active Substance: PEMBROLIZUMAB
     Dosage: DOUBLET X 2
  3. PLATINUM [Suspect]
     Active Substance: PLATINUM
     Indication: Lung squamous cell carcinoma stage III
     Dosage: DOUBLET X 1
  4. PLATINUM [Suspect]
     Active Substance: PLATINUM
     Dosage: DOUBLET X 2
  5. OSIMERTINIB [Suspect]
     Active Substance: OSIMERTINIB
     Indication: Lung squamous cell carcinoma stage III
     Dosage: ADJUVANT THERPAY

REACTIONS (5)
  - Lung adenocarcinoma stage 0 [Unknown]
  - Pneumoconiosis [Unknown]
  - Malignant neoplasm progression [Unknown]
  - Hypotension [Unknown]
  - Dyspnoea [Unknown]
